FAERS Safety Report 4512572-7 (Version None)
Quarter: 2004Q4

REPORT INFORMATION
  Report Type: 
  Country: None (occurrence: None)
  Receive Date: 20041124
  Receipt Date: 20041108
  Transmission Date: 20050328
  Serious: Yes (Other)
  Sender: FDA-Public Use
  Company Number: USA040669259

PATIENT
  Age: 76 Year
  Sex: Female

DRUGS (1)
  1. EVISTA [Suspect]
     Dosage: 60 MG
     Dates: start: 20020101

REACTIONS (3)
  - EYE HAEMORRHAGE [None]
  - MUSCLE CRAMP [None]
  - VISUAL DISTURBANCE [None]
